FAERS Safety Report 8516747-1 (Version None)
Quarter: 2012Q3

REPORT INFORMATION
  Report Type: 
  Country: None (occurrence: None)
  Receive Date: 20120706
  Receipt Date: 20120702
  Transmission Date: 20120928
  Serious: Yes (Hospitalization, Other)
  Sender: FDA-Public Use
  Company Number: GER/UKI/12/0024893

PATIENT
  Age: 71 Year
  Sex: Male

DRUGS (6)
  1. PERINDOPRIL ERBUMINE [Concomitant]
  2. THIAMINE HCL [Concomitant]
  3. CLOPIDOGREL [Suspect]
     Indication: CEREBROVASCULAR ACCIDENT
     Dosage: 75 MG, 1 IN 1 D, ORAL
     Route: 048
  4. SIMVASTATIN [Concomitant]
  5. AMITRIPTYLINE HCL [Concomitant]
  6. OMEPRAZOLE [Suspect]
     Indication: PRODUCT USED FOR UNKNOWN INDICATION
     Dosage: ORAL
     Route: 048

REACTIONS (6)
  - UPPER GASTROINTESTINAL HAEMORRHAGE [None]
  - OESOPHAGITIS [None]
  - BLOOD UREA INCREASED [None]
  - HAEMOGLOBIN DECREASED [None]
  - DRUG INTERACTION [None]
  - ISCHAEMIA [None]
